FAERS Safety Report 4632917-7 (Version None)
Quarter: 2005Q2

REPORT INFORMATION
  Report Type: 
  Country: None (occurrence: None)
  Receive Date: 20050412
  Receipt Date: 20050401
  Transmission Date: 20051028
  Serious: Yes (Hospitalization)
  Sender: FDA-Public Use
  Company Number: BR-JNJFOC-20050306899

PATIENT
  Age: 2 Year
  Sex: Male

DRUGS (1)
  1. HALDOL [Suspect]
     Indication: DRUG USE FOR UNKNOWN INDICATION
     Dosage: 3 OR 4 TABLETS
     Route: 049

REACTIONS (4)
  - ACCIDENTAL EXPOSURE [None]
  - HYPERTONIA [None]
  - SOMNOLENCE [None]
  - TREMOR [None]
